FAERS Safety Report 19887188 (Version 1)
Quarter: 2021Q3

REPORT INFORMATION
  Report Type: Spontaneous
  Country: US (occurrence: US)
  Receive Date: 20210927
  Receipt Date: 20210927
  Transmission Date: 20211014
  Serious: Yes (Other)
  Sender: FDA-Public Use
  Company Number: US-BAYER-2021A216878

PATIENT
  Sex: Male
  Weight: .5 kg

DRUGS (2)
  1. BAYER LOW DOSE [Suspect]
     Active Substance: ASPIRIN
     Dosage: UNK
     Route: 064
  2. LABETALOL [Concomitant]
     Active Substance: LABETALOL\LABETALOL HYDROCHLORIDE
     Route: 064

REACTIONS (5)
  - Breech presentation [None]
  - Premature baby [None]
  - Low birth weight baby [None]
  - Foetal heart rate deceleration abnormality [None]
  - Foetal exposure during pregnancy [None]
